FAERS Safety Report 23158643 (Version 1)
Quarter: 2023Q4

REPORT INFORMATION
  Report Type: Spontaneous
  Country: US (occurrence: None)
  Receive Date: 20231106
  Receipt Date: 20231106
  Transmission Date: 20240109
  Serious: Yes (Death)
  Sender: FDA-Public Use
  Company Number: None

PATIENT
  Sex: Male

DRUGS (1)
  1. ENBREL [Suspect]
     Active Substance: ETANERCEPT
     Indication: Chronic kidney disease
     Dosage: 25/0.5 MG/ML SUBCUTANEOUS??INJECT 1 SYRINGE UNDER THE SKIN (SUBCUTANEOUS INJECTION ) TWICE WEEKLY?
     Route: 058
     Dates: start: 20210728

REACTIONS (1)
  - Death [None]
